FAERS Safety Report 10924990 (Version 1)
Quarter: 2015Q1

REPORT INFORMATION
  Report Type: Spontaneous
  Country: US (occurrence: None)
  Receive Date: 20150316
  Receipt Date: 20150316
  Transmission Date: 20150721
  Serious: Yes (Disabling)
  Sender: FDA-Public Use
  Company Number: None

PATIENT
  Age: 40 Year
  Sex: Female
  Weight: 78.93 kg

DRUGS (7)
  1. EXCEDRIN MIGRAINE [Concomitant]
     Active Substance: ACETAMINOPHEN\ASPIRIN\CAFFEINE
  2. ALLEGRA [Concomitant]
     Active Substance: FEXOFENADINE HYDROCHLORIDE
  3. DEPO-PROVERA [Suspect]
     Active Substance: MEDROXYPROGESTERONE ACETATE
     Indication: CONTRACEPTION
     Dosage: 1 EVERY 3 MONTHS GIVEN INTO/UNDER THE SKIN
  4. PROPRANOLOL [Concomitant]
     Active Substance: PROPRANOLOL\PROPRANOLOL HYDROCHLORIDE
  5. VOLTAREN [Concomitant]
     Active Substance: DICLOFENAC SODIUM
  6. MIRENA [Suspect]
     Active Substance: LEVONORGESTREL
     Indication: CONTRACEPTION
     Dosage: 1 EVERY 5 YEARS VAGINAL
     Route: 067
  7. NEXIUM [Concomitant]
     Active Substance: ESOMEPRAZOLE MAGNESIUM

REACTIONS (12)
  - Nausea [None]
  - Endometrial atrophy [None]
  - Weight increased [None]
  - Joint dislocation [None]
  - Device dislocation [None]
  - Hot flush [None]
  - Muscular weakness [None]
  - Arthritis [None]
  - Headache [None]
  - Chills [None]
  - Uterine haemorrhage [None]
  - Migraine [None]

NARRATIVE: CASE EVENT DATE: 20150312
